FAERS Safety Report 6486946-1 (Version None)
Quarter: 2009Q4

REPORT INFORMATION
  Report Type: 
  Country: None (occurrence: None)
  Receive Date: 20091210
  Receipt Date: 20091130
  Transmission Date: 20100525
  Serious: Yes (Disabling)
  Sender: FDA-Public Use
  Company Number: PHHY2009TZ52885

PATIENT
  Sex: Female

DRUGS (1)
  1. CGP 56697 T31707+ [Suspect]
     Indication: MALARIA
     Dosage: 4 TABLETS BID, 3 DAYS IN A WEEK
     Route: 048
     Dates: start: 20090201

REACTIONS (1)
  - DIPLEGIA [None]
